FAERS Safety Report 16982292 (Version 1)
Quarter: 2019Q4

REPORT INFORMATION
  Report Type: Spontaneous
  Country: CA (occurrence: CA)
  Receive Date: 20191101
  Receipt Date: 20191101
  Transmission Date: 20200122
  Serious: Yes (Other)
  Sender: FDA-Public Use
  Company Number: CA-ASTRAZENECA-2019SF51874

PATIENT
  Sex: Female

DRUGS (4)
  1. ZOLADEX [Suspect]
     Active Substance: GOSERELIN ACETATE
     Route: 058
     Dates: start: 2014, end: 2016
  2. FULVESTRANT. [Suspect]
     Active Substance: FULVESTRANT
     Route: 030
     Dates: start: 201603, end: 201608
  3. FEMARA [Concomitant]
     Active Substance: LETROZOLE
  4. TAMOXIFEN CITRATE. [Suspect]
     Active Substance: TAMOXIFEN CITRATE
     Route: 048
     Dates: start: 2014, end: 2016

REACTIONS (1)
  - Malignant neoplasm progression [Unknown]
